FAERS Safety Report 5420965-9 (Version None)
Quarter: 2007Q3

REPORT INFORMATION
  Report Type: 
  Country: None (occurrence: None)
  Receive Date: 20070821
  Receipt Date: 20070815
  Transmission Date: 20080115
  Serious: Yes (Death)
  Sender: FDA-Public Use
  Company Number: FR-MERCK-0708USA03103

PATIENT

DRUGS (1)
  1. BENEMID [Suspect]
     Indication: GOUT
     Route: 048

REACTIONS (4)
  - NEPHROTIC SYNDROME [None]
  - OEDEMA [None]
  - PROTEINURIA [None]
  - RENAL FAILURE [None]
